FAERS Safety Report 17676902 (Version 2)
Quarter: 2020Q2

REPORT INFORMATION
  Report Type: Report from Study
  Country: MX (occurrence: MX)
  Receive Date: 20200416
  Receipt Date: 20200617
  Transmission Date: 20200714
  Serious: Yes (Death, Other)
  Sender: FDA-Public Use
  Company Number: MX-ASTRAZENECA-2020SE51602

PATIENT
  Age: 72 Year
  Sex: Male
  Weight: 70 kg

DRUGS (1)
  1. TAGRISSO [Suspect]
     Active Substance: OSIMERTINIB
     Indication: LUNG NEOPLASM MALIGNANT
     Route: 048
     Dates: start: 20200213, end: 20200409

REACTIONS (4)
  - Lung abscess [Unknown]
  - Diarrhoea [Fatal]
  - Pseudomembranous colitis [Fatal]
  - Pneumonia [Unknown]

NARRATIVE: CASE EVENT DATE: 20200409
